FAERS Safety Report 5868977-5 (Version None)
Quarter: 2008Q3

REPORT INFORMATION
  Report Type: 
  Country: None (occurrence: None)
  Receive Date: 20080902
  Receipt Date: 20080902
  Transmission Date: 20090109
  Serious: Yes (Hospitalization)
  Sender: FDA-Public Use
  Company Number: None

PATIENT
  Age: 61 Year
  Sex: Male

DRUGS (1)
  1. PREDNISONE TAB [Suspect]
     Indication: ARTHRITIS
     Dosage: 20 MG EVERY DAY PO
     Route: 048
     Dates: start: 20080729, end: 20080805

REACTIONS (1)
  - HYPERGLYCAEMIA [None]
